FAERS Safety Report 5390095-3 (Version None)
Quarter: 2007Q3

REPORT INFORMATION
  Report Type: 
  Country: None (occurrence: None)
  Receive Date: 20070718
  Receipt Date: 20070709
  Transmission Date: 20080115
  Serious: Yes (Life-Threatening, Hospitalization, Other)
  Sender: FDA-Public Use
  Company Number: B0446201A

PATIENT
  Age: 43 Year
  Sex: Female
  Weight: 76 kg

DRUGS (3)
  1. IMIGRAN [Suspect]
     Indication: MIGRAINE
     Dosage: 50MG AS REQUIRED
     Route: 048
  2. RIZATRIPTAN BENZOATE [Suspect]
     Indication: MIGRAINE
     Dosage: 10MG AS REQUIRED
     Route: 065
  3. AMITRIPTYLINE HCL [Concomitant]
     Indication: HEADACHE
     Dosage: 75MG UNKNOWN
     Route: 048
     Dates: start: 20061016

REACTIONS (9)
  - CHEST PAIN [None]
  - CORONARY ARTERY DISEASE [None]
  - ELECTROCARDIOGRAM ST SEGMENT DEPRESSION [None]
  - HEART INJURY [None]
  - HYPERTENSION [None]
  - MALAISE [None]
  - MIGRAINE [None]
  - PAIN IN EXTREMITY [None]
  - VOMITING [None]
